FAERS Safety Report 9381344 (Version 2)
Quarter: 2013Q3

REPORT INFORMATION
  Report Type: Report from Study
  Country: FR (occurrence: FR)
  Receive Date: 20130703
  Receipt Date: 20130906
  Transmission Date: 20140515
  Serious: Yes (Hospitalization)
  Sender: FDA-Public Use
  Company Number: FR-009507513-1306FRA012906

PATIENT
  Age: 38 Year
  Sex: Female
  Weight: 88 kg

DRUGS (18)
  1. RALTEGRAVIR POTASSIUM [Suspect]
     Indication: PRODUCT USED FOR UNKNOWN INDICATION
     Dosage: 400 MG, BID
     Route: 048
     Dates: start: 20120530
  2. RALTEGRAVIR POTASSIUM [Suspect]
     Dosage: UNK
     Route: 048
  3. ZIAGEN [Concomitant]
     Indication: HIV INFECTION
     Dosage: 300 MG, BID
     Dates: start: 20070829
  4. EPIVIR [Concomitant]
     Indication: HIV INFECTION
     Dosage: UNK
     Dates: start: 20120530
  5. PARIET [Concomitant]
     Indication: PROPHYLAXIS
     Dosage: 20 MG, QD
     Dates: start: 20120530
  6. UMULINE RAPIDE [Concomitant]
     Indication: DIABETES MELLITUS
     Dosage: 10 IU, QD
  7. AMLOR [Concomitant]
     Indication: HYPERTENSION
     Dosage: 10 MG, QD
     Dates: start: 20120405
  8. HYPERIUM [Concomitant]
     Dosage: 1 DF, BID
     Dates: start: 20130115
  9. APROVEL [Concomitant]
     Indication: HYPERTENSION
     Dosage: 150 MG, QD
     Dates: start: 20110421
  10. EUPRESSYL [Concomitant]
     Indication: HYPERTENSION
     Dosage: 60 MG, BID
     Dates: start: 20130215
  11. ZOCOR [Concomitant]
     Indication: HYPERCHOLESTEROLAEMIA
     Dosage: 20 MG, QD
     Dates: start: 20120530
  12. CORTANCYL [Concomitant]
     Indication: TRANSPLANT
     Dosage: 10 MG, QD
     Dates: start: 20100716
  13. CELLCEPT [Concomitant]
     Indication: TRANSPLANT
     Dosage: 1 G, BID
     Dates: start: 20120530
  14. LEXOMIL [Concomitant]
     Indication: ANXIETY
     Dosage: 1 DF, QD
     Dates: start: 20120530
  15. ZOLOFT [Concomitant]
     Indication: ANXIETY
     Dosage: 1 DF, QD
     Dates: start: 20110421
  16. ZELITREX [Concomitant]
     Indication: PROPHYLAXIS AGAINST TRANSPLANT REJECTION
  17. WELLVONE [Concomitant]
     Indication: PROPHYLAXIS
     Dosage: 750 MG, BID
     Dates: start: 20130215
  18. SODIUM BICARBONATE [Concomitant]
     Indication: RENAL FAILURE
     Dosage: 1 G, QID

REACTIONS (1)
  - Legionella infection [Not Recovered/Not Resolved]
